FAERS Safety Report 10712034 (Version 1)
Quarter: 2015Q1

REPORT INFORMATION
  Report Type: Spontaneous
  Country: US (occurrence: US)
  Receive Date: 20150114
  Receipt Date: 20150114
  Transmission Date: 20150721
  Serious: No
  Sender: FDA-Public Use
  Company Number: US-ALLERGAN-1406460US

PATIENT
  Sex: Female

DRUGS (2)
  1. ACZONE [Suspect]
     Active Substance: DAPSONE
     Indication: ACNE
     Dosage: UNK
     Route: 061
     Dates: start: 20140205
  2. RETIN-A [Concomitant]
     Active Substance: TRETINOIN
     Indication: ACNE

REACTIONS (3)
  - Application site erythema [Recovered/Resolved]
  - Application site papules [Recovered/Resolved]
  - Application site dryness [Recovered/Resolved]

NARRATIVE: CASE EVENT DATE: 201402
